FAERS Safety Report 9219468 (Version 1)
Quarter: 2013Q2

REPORT INFORMATION
  Report Type: Spontaneous
  Country: US (occurrence: None)
  Receive Date: 20130405
  Receipt Date: 20130405
  Transmission Date: 20140414
  Serious: Yes (Hospitalization, Other)
  Sender: FDA-Public Use
  Company Number: DSU-2013-02427

PATIENT
  Sex: Female

DRUGS (4)
  1. BENICAR [Suspect]
     Indication: HYPERTENSION
     Route: 048
     Dates: end: 201205
  2. CHEMOTHERAPY [Suspect]
     Indication: BREAST CANCER FEMALE
  3. XANAX [Concomitant]
  4. NEXIUM (ESOMEPRAZOLE MAGNESIUM) (ESOMEPRAZOLE MAGNESIUM) [Concomitant]

REACTIONS (5)
  - Breast cancer female [None]
  - Spinal fracture [None]
  - Blood pressure increased [None]
  - Hypotension [None]
  - Arthropod sting [None]
